FAERS Safety Report 5651364-2 (Version None)
Quarter: 2008Q1

REPORT INFORMATION
  Report Type: 
  Country: None (occurrence: None)
  Receive Date: 20080305
  Receipt Date: 20080227
  Transmission Date: 20080703
  Serious: No
  Sender: FDA-Public Use
  Company Number: US-BAXTER-2008BH001724

PATIENT
  Age: 48 Year
  Sex: Male
  Weight: 66 kg

DRUGS (9)
  1. HEPARIN SODIUM [Suspect]
     Indication: THROMBOSIS PROPHYLAXIS
     Dosage: DOSE UNIT:CUBIC CENTIMETER
     Route: 010
     Dates: start: 19950101, end: 20080201
  2. HEPARIN SODIUM [Suspect]
     Dosage: DOSE UNIT:CUBIC CENTIMETER
     Route: 010
     Dates: start: 19950101, end: 20080201
  3. NORCO [Concomitant]
     Indication: BACK PAIN
     Route: 048
  4. RENAGEL [Concomitant]
     Indication: BLOOD PHOSPHORUS
     Route: 048
  5. LIPITOR [Concomitant]
     Indication: BLOOD CHOLESTEROL
     Route: 048
  6. IRON [Concomitant]
     Indication: DRUG USE FOR UNKNOWN INDICATION
     Route: 048
  7. CALCITRIOL [Concomitant]
     Indication: DRUG USE FOR UNKNOWN INDICATION
     Route: 048
  8. ASPIRIN [Concomitant]
     Indication: DRUG USE FOR UNKNOWN INDICATION
     Route: 048
  9. DIANEAL [Concomitant]
     Indication: RENAL FAILURE
     Dosage: DOSE UNIT:UNKNOWN
     Route: 033

REACTIONS (4)
  - ARTHRALGIA [None]
  - HEART RATE IRREGULAR [None]
  - NASOPHARYNGITIS [None]
  - NAUSEA [None]
